FAERS Safety Report 5606534-6 (Version None)
Quarter: 2008Q1

REPORT INFORMATION
  Report Type: 
  Country: None (occurrence: None)
  Receive Date: 20080129
  Receipt Date: 20080125
  Transmission Date: 20080703
  Serious: Yes (Disabling)
  Sender: FDA-Public Use
  Company Number: D0054985A

PATIENT
  Sex: Female
  Weight: 48 kg

DRUGS (3)
  1. LAMICTAL [Suspect]
     Indication: PARTIAL SEIZURES
     Route: 065
     Dates: start: 19930101, end: 20071218
  2. KEPPRA [Concomitant]
     Dosage: 500MG TWICE PER DAY
     Route: 065
     Dates: start: 20040101, end: 20070101
  3. RIVOTRIL 0.5 [Concomitant]
     Route: 065
     Dates: start: 20010101, end: 20030101

REACTIONS (12)
  - ANGIOPATHY [None]
  - BLOOD CREATININE INCREASED [None]
  - CONNECTIVE TISSUE DISORDER [None]
  - DYSPHAGIA [None]
  - FROSTBITE [None]
  - GASTROOESOPHAGEAL REFLUX DISEASE [None]
  - HYPOKINESIA [None]
  - MUSCULOSKELETAL STIFFNESS [None]
  - PAIN [None]
  - PAIN IN EXTREMITY [None]
  - RHINALGIA [None]
  - SCLERODERMA [None]
